FAERS Safety Report 6169134-8 (Version None)
Quarter: 2009Q2

REPORT INFORMATION
  Report Type: 
  Country: None (occurrence: None)
  Receive Date: 20090427
  Receipt Date: 20090415
  Transmission Date: 20091009
  Serious: Yes (Other)
  Sender: FDA-Public Use
  Company Number: AU-ELI_LILLY_AND_COMPANY-AU200807004504

PATIENT
  Sex: Female

DRUGS (1)
  1. ZYPREXA [Suspect]
     Indication: ANXIETY

REACTIONS (4)
  - DRUG EXPOSURE DURING PREGNANCY [None]
  - LACTATION DISORDER [None]
  - MASTITIS [None]
  - OBSTRUCTED LABOUR [None]
